FAERS Safety Report 8012445-1 (Version None)
Quarter: 2011Q4

REPORT INFORMATION
  Report Type: 
  Country: None (occurrence: None)
  Receive Date: 20111228
  Receipt Date: 20111223
  Transmission Date: 20120403
  Serious: Yes (Other)
  Sender: FDA-Public Use
  Company Number: US-ROCHE-1019932

PATIENT
  Sex: Female

DRUGS (2)
  1. PEGASYS [Suspect]
     Indication: HEPATITIS C
     Dates: start: 20111126
  2. RIBASPHERE [Suspect]
     Indication: HEPATITIS C
     Dosage: 1 PILL IN AM AND 1 PILL IN PM
     Dates: start: 20111126

REACTIONS (2)
  - ABDOMINAL PAIN [None]
  - HEPATOMEGALY [None]
